FAERS Safety Report 7774726-6 (Version None)
Quarter: 2011Q3

REPORT INFORMATION
  Report Type: 
  Country: None (occurrence: None)
  Receive Date: 20110923
  Receipt Date: 20110920
  Transmission Date: 20111222
  Serious: Yes (Death)
  Sender: FDA-Public Use
  Company Number: BE-ROCHE-803230

PATIENT
  Sex: Male
  Weight: 72 kg

DRUGS (4)
  1. LEUCOVORIN CALCIUM [Suspect]
     Indication: COLORECTAL CANCER
     Route: 065
  2. FLUOROURACIL [Suspect]
     Indication: COLORECTAL CANCER
     Route: 065
  3. FLUOROURACIL [Suspect]
     Route: 065
  4. IRINOTECAN HCL [Suspect]
     Indication: COLORECTAL CANCER
     Route: 065

REACTIONS (1)
  - MYOCARDIAL INFARCTION [None]
